FAERS Safety Report 10236650 (Version 2)
Quarter: 2014Q2

REPORT INFORMATION
  Report Type: Spontaneous
  Country: JP (occurrence: JP)
  Receive Date: 20140613
  Receipt Date: 20140623
  Transmission Date: 20141212
  Serious: Yes (Death, Other)
  Sender: FDA-Public Use
  Company Number: JP-BAYER-2014-085053

PATIENT
  Age: 55 Year
  Sex: Female

DRUGS (10)
  1. BETAFERON [Suspect]
     Indication: MULTIPLE SCLEROSIS RELAPSE PROPHYLAXIS
     Dosage: 8 MIU, UNK
     Route: 058
     Dates: start: 20100430
  2. PREDONINE [Concomitant]
     Indication: PROPHYLAXIS
     Dosage: DAILY DOSE 12.5 MG
     Route: 048
     Dates: start: 20120827
  3. LIPITOR [Concomitant]
     Indication: HYPERLIPIDAEMIA
     Dosage: DAILY DOSE 10 MG
     Route: 048
     Dates: start: 20100430
  4. TERNELIN [Concomitant]
     Indication: JOINT ANKYLOSIS
     Dosage: DAILY DOSE 3 MG
     Route: 048
     Dates: start: 20100430
  5. TELEMINSOFT [Concomitant]
     Dosage: 1 A DAY
     Route: 054
     Dates: start: 20140531, end: 20140531
  6. TEGRETOL [Concomitant]
     Indication: EPILEPSY
     Dosage: DAILY DOSE 400 MG
     Route: 048
     Dates: start: 20100430
  7. SOLIFENACIN SUCCINATE [Concomitant]
     Indication: DIABETES MELLITUS
     Dosage: DAILY DOSE 10 MG
     Route: 048
     Dates: start: 20100430
  8. TAKEPRON [Concomitant]
     Indication: GASTRIC ULCER
     Dosage: DAILY DOSE 15 MG
     Route: 048
     Dates: start: 20100430
  9. MAGNESIUM OXIDE [Concomitant]
     Indication: CONSTIPATION
     Dosage: DAILY DOSE 3 G
     Route: 048
     Dates: start: 20100430
  10. MIYA BM [Concomitant]
     Indication: CONSTIPATION
     Dosage: DAILY DOSE 2 G
     Route: 048
     Dates: start: 20100430

REACTIONS (12)
  - Respiratory failure [Fatal]
  - Cardiac arrest [Fatal]
  - Blood pressure decreased [Fatal]
  - Coma [None]
  - Loss of consciousness [None]
  - Pupillary reflex impaired [None]
  - Mydriasis [None]
  - Malaise [None]
  - Nausea [None]
  - Abdominal pain [None]
  - Dyspnoea [None]
  - Cyanosis [None]
